FAERS Safety Report 10133107 (Version 1)
Quarter: 2014Q2

REPORT INFORMATION
  Report Type: Spontaneous
  Country: US (occurrence: US)
  Receive Date: 20140428
  Receipt Date: 20140428
  Transmission Date: 20141212
  Serious: No
  Sender: FDA-Public Use
  Company Number: US-BRACCO-010085

PATIENT
  Sex: Male

DRUGS (1)
  1. PROHANCE [Suspect]
     Indication: ANGIOGRAM
     Route: 042
     Dates: start: 20130918, end: 20130918

REACTIONS (4)
  - Cold sweat [Recovered/Resolved]
  - Syncope [Recovered/Resolved]
  - Retching [Recovered/Resolved]
  - Nausea [Recovered/Resolved]
